FAERS Safety Report 5600719-0 (Version None)
Quarter: 2008Q1

REPORT INFORMATION
  Report Type: 
  Country: None (occurrence: None)
  Receive Date: 20080111
  Receipt Date: 20061128
  Transmission Date: 20080703
  Serious: Yes (Other)
  Sender: FDA-Public Use
  Company Number: HQWYE284924FEB04

PATIENT
  Age: 57 Year
  Sex: Female
  Weight: 57.2 kg

DRUGS (3)
  1. PREMPRO [Suspect]
     Indication: HORMONE REPLACEMENT THERAPY
     Dosage: 0.625MG/UNSPECIFIED, ORAL
     Route: 048
     Dates: start: 19980806, end: 20020307
  2. PREMARIN [Suspect]
     Indication: HORMONE REPLACEMENT THERAPY
     Dosage: ORAL
     Route: 048
     Dates: start: 19800101, end: 19980806
  3. PROVERA [Suspect]
     Indication: HORMONE REPLACEMENT THERAPY
     Dosage: ORAL
     Route: 048
     Dates: start: 19800101, end: 19980806

REACTIONS (1)
  - BREAST CANCER FEMALE [None]
